FAERS Safety Report 8249765-1 (Version None)
Quarter: 2012Q2

REPORT INFORMATION
  Report Type: 
  Country: None (occurrence: None)
  Receive Date: 20120402
  Receipt Date: 20120323
  Transmission Date: 20120825
  Serious: Yes (Other)
  Sender: FDA-Public Use
  Company Number: PHHY2012BR025820

PATIENT
  Sex: Female

DRUGS (2)
  1. TEGRETOL-XR [Suspect]
  2. TEGRETOL [Suspect]
     Dosage: UNK
     Dates: start: 20111101

REACTIONS (13)
  - LIVER DISORDER [None]
  - NERVOUSNESS [None]
  - FACIAL PAIN [None]
  - PARAESTHESIA [None]
  - SOMNOLENCE [None]
  - DIZZINESS [None]
  - SHOCK [None]
  - HYPOAESTHESIA [None]
  - EAR PAIN [None]
  - VIITH NERVE PARALYSIS [None]
  - WEIGHT DECREASED [None]
  - EATING DISORDER [None]
  - EMOTIONAL DISORDER [None]
